FAERS Safety Report 19401342 (Version 1)
Quarter: 2021Q2

REPORT INFORMATION
  Report Type: Spontaneous
  Country: US (occurrence: US)
  Receive Date: 20210610
  Receipt Date: 20210610
  Transmission Date: 20210717
  Serious: No
  Sender: FDA-Public Use
  Company Number: US-BIOMARINAP-US-2021-136823

PATIENT
  Age: 2 Year
  Sex: Female
  Weight: 13.8 kg

DRUGS (1)
  1. KUVAN [Suspect]
     Active Substance: SAPROPTERIN DIHYDROCHLORIDE
     Indication: PHENYLKETONURIA
     Dosage: 275 MILLIGRAM, QD
     Route: 048
     Dates: start: 2019

REACTIONS (2)
  - Myalgia [Recovered/Resolved]
  - Arthralgia [Unknown]
